FAERS Safety Report 23254049 (Version 1)
Quarter: 2023Q4

REPORT INFORMATION
  Report Type: Spontaneous
  Country: AU (occurrence: AU)
  Receive Date: 20231202
  Receipt Date: 20231202
  Transmission Date: 20240109
  Serious: Yes (Other)
  Sender: FDA-Public Use
  Company Number: None

PATIENT
  Age: 60 Year
  Sex: Female

DRUGS (4)
  1. LEXAPRO [Suspect]
     Active Substance: ESCITALOPRAM OXALATE
     Indication: Injury
     Route: 048
  2. LEXAPRO [Suspect]
     Active Substance: ESCITALOPRAM OXALATE
     Indication: Injury
     Dosage: 10-20MG/DAY
     Route: 048
     Dates: start: 20191020, end: 20221130
  3. METHOTREXATE [Concomitant]
     Active Substance: METHOTREXATE
     Indication: Pulmonary sarcoidosis
     Route: 065
  4. PREDNISONE [Concomitant]
     Active Substance: PREDNISONE
     Indication: Product used for unknown indication
     Route: 065

REACTIONS (9)
  - Affective disorder [Not Recovered/Not Resolved]
  - Restless legs syndrome [Recovered/Resolved]
  - Withdrawal syndrome [Unknown]
  - Hyperarousal [Unknown]
  - Dissociation [Recovered/Resolved]
  - Dizziness [Recovered/Resolved]
  - Paraesthesia [Unknown]
  - Suicidal ideation [Not Recovered/Not Resolved]
  - Electric shock sensation [Not Recovered/Not Resolved]

NARRATIVE: CASE EVENT DATE: 20220110
